FAERS Safety Report 9019716 (Version 1)
Quarter: 2013Q1

REPORT INFORMATION
  Report Type: Report from Study
  Country: GB (occurrence: GB)
  Receive Date: 20130118
  Receipt Date: 20130118
  Transmission Date: 20140127
  Serious: Yes (Hospitalization)
  Sender: FDA-Public Use
  Company Number: GB-ROCHE-1178842

PATIENT
  Age: 58 None
  Sex: Male

DRUGS (6)
  1. BEVACIZUMAB [Suspect]
     Indication: GASTRIC CANCER
     Dosage: DATE OF MOST RECENT DOSE: 07/SEP/2012
     Route: 042
     Dates: start: 20120727
  2. CAPECITABINE [Suspect]
     Indication: GASTRIC CANCER
     Dosage: 1000MG MORNING+1500MG EVENING,DATE OF MOST RECENT DOSE: 28/SEP/2012
     Route: 048
     Dates: start: 20120727
  3. EPIRUBICIN [Suspect]
     Indication: GASTRIC CANCER
     Dosage: DATE OF MOST RECENT DOSE: 07/SEP/2012
     Route: 042
     Dates: start: 20120727
  4. CISPLATIN [Suspect]
     Indication: GASTRIC CANCER
     Dosage: DATE OF MOST RECENT DOSE: 07/SEP/2012
     Route: 042
     Dates: start: 20120727
  5. DEXAMETHASONE [Suspect]
     Indication: PRODUCT USED FOR UNKNOWN INDICATION
     Route: 042
     Dates: start: 20120907, end: 20120910
  6. INSULIN [Suspect]
     Indication: PRODUCT USED FOR UNKNOWN INDICATION
     Route: 058

REACTIONS (1)
  - Anastomotic leak [Not Recovered/Not Resolved]
